FAERS Safety Report 8255114 (Version 18)
Quarter: 2013Q4

REPORT INFORMATION
  Report Type: Spontaneous
  Country: PH (occurrence: PH)
  Receive Date: 20111118
  Receipt Date: 20131106
  Transmission Date: 20140711
  Serious: Yes (Death, Life-Threatening, Hospitalization, Disabling, Other)
  Sender: FDA-Public Use
  Company Number: PH-SANOFI-AVENTIS-2011SA075588

PATIENT
  Age: 68 Year
  Sex: Female
  Weight: 52 kg

DRUGS (12)
  1. DOCETAXEL [Suspect]
     Indication: HER-2 POSITIVE BREAST CANCER
     Dosage: FORM: VIAL
     Route: 042
     Dates: start: 20101026, end: 20101116
  2. DOCETAXEL [Suspect]
     Indication: HER-2 POSITIVE BREAST CANCER
     Dosage: FORM: VIAL
     Route: 042
     Dates: start: 20101026, end: 20101116
  3. TRASTUZUMAB [Suspect]
     Indication: HER-2 POSITIVE BREAST CANCER
     Dosage: VIAL?DOSE: 420, UNITS NOT REPORTED
     Route: 042
     Dates: start: 20101026, end: 20101116
  4. CIPROFLOXACIN [Concomitant]
     Dates: start: 20101026, end: 20101102
  5. OMEPRAZOLE [Concomitant]
     Dates: start: 20101104, end: 20101123
  6. FLUCONAZOLE [Concomitant]
     Dates: start: 20101103, end: 20101109
  7. TINZAPARIN [Concomitant]
     Dosage: DOSE:10000 UNIT(S)
     Dates: start: 20101105, end: 20101106
  8. VITAMIN K [Concomitant]
     Dates: start: 20101107, end: 20101116
  9. MUCOSTA [Concomitant]
     Dates: start: 20101109, end: 20101111
  10. TRANEXAMIC ACID [Concomitant]
     Dates: start: 20101114, end: 20101123
  11. IMIPENEM [Concomitant]
     Dates: start: 20101110
  12. IMIPENEM [Concomitant]
     Dates: start: 20101119, end: 20101123

REACTIONS (7)
  - Pneumonia [Fatal]
  - Hepatic failure [Fatal]
  - Gastrointestinal ulcer [Not Recovered/Not Resolved]
  - Neutrophil count decreased [Recovered/Resolved]
  - Pneumonia [Not Recovered/Not Resolved]
  - Neutropenia [Unknown]
  - Duodenal ulcer [Fatal]
